FAERS Safety Report 4674162-5 (Version None)
Quarter: 2005Q2

REPORT INFORMATION
  Report Type: 
  Country: None (occurrence: None)
  Receive Date: 20050524
  Receipt Date: 20050524
  Transmission Date: 20051028
  Serious: No
  Sender: FDA-Public Use
  Company Number: None

PATIENT
  Sex: Male
  Weight: 53.1 kg

DRUGS (2)
  1. GEMCITABINE [Suspect]
     Dosage: 3000MG/M2   IV
     Route: 042
     Dates: start: 20050321
  2. PACLITAXEL [Suspect]
     Dosage: 150MG/M2    DAYS 1/15
     Dates: start: 20050321

REACTIONS (1)
  - CARDIAC ARREST [None]
